FAERS Safety Report 13546891 (Version 1)
Quarter: 2017Q2

REPORT INFORMATION
  Report Type: Spontaneous
  Country: IT (occurrence: IT)
  Receive Date: 20170515
  Receipt Date: 20170515
  Transmission Date: 20170830
  Serious: Yes (Hospitalization)
  Sender: FDA-Public Use
  Company Number: PHHY2017IT070565

PATIENT
  Age: 5 Year
  Sex: Female

DRUGS (1)
  1. TEGRETOL [Suspect]
     Active Substance: CARBAMAZEPINE
     Indication: EPILEPSY
     Dosage: 9 MG, QD
     Route: 048
     Dates: start: 20161001, end: 20170427

REACTIONS (5)
  - Abnormal behaviour [Recovering/Resolving]
  - Irritability [Recovering/Resolving]
  - Flatulence [Recovering/Resolving]
  - Constipation [Recovering/Resolving]
  - Restlessness [Recovering/Resolving]

NARRATIVE: CASE EVENT DATE: 20161201
